FAERS Safety Report 8593665-4 (Version None)
Quarter: 2012Q3

REPORT INFORMATION
  Report Type: 
  Country: None (occurrence: None)
  Receive Date: 20120803
  Receipt Date: 20120803
  Transmission Date: 20120928
  Serious: Yes (Hospitalization)
  Sender: FDA-Public Use
  Company Number: None

PATIENT
  Age: 60 Year
  Sex: Female

DRUGS (1)
  1. CLOPIDOGREL [Suspect]
     Indication: STENT PLACEMENT
     Dosage: 75MG DAILY PO
     Route: 048
     Dates: start: 20010801, end: 20120623

REACTIONS (2)
  - PRODUCT SUBSTITUTION ISSUE [None]
  - ACUTE MYOCARDIAL INFARCTION [None]
